FAERS Safety Report 9726220 (Version 2)
Quarter: 2014Q1

REPORT INFORMATION
  Report Type: Spontaneous
  Country: US (occurrence: US)
  Receive Date: 20131203
  Receipt Date: 20140228
  Transmission Date: 20141002
  Serious: Yes (Other)
  Sender: FDA-Public Use
  Company Number: US-JNJFOC-20131116324

PATIENT
  Age: 46 Year
  Sex: Male

DRUGS (2)
  1. INFLIXIMAB, RECOMBINANT [Suspect]
     Indication: CROHN^S DISEASE
     Dosage: WAS ON INFLIXIMAB FOR 4 YEARS
     Route: 042
  2. METHOTREXATE [Suspect]
     Indication: CROHN^S DISEASE
     Route: 065

REACTIONS (3)
  - Peripheral T-cell lymphoma unspecified [Recovered/Resolved]
  - Febrile neutropenia [Unknown]
  - Clostridium difficile colitis [Unknown]
